FAERS Safety Report 4572130-5 (Version None)
Quarter: 2005Q1

REPORT INFORMATION
  Report Type: 
  Country: None (occurrence: None)
  Receive Date: 20050202
  Receipt Date: 20050117
  Transmission Date: 20050727
  Serious: Yes (Hospitalization)
  Sender: FDA-Public Use
  Company Number: US_0501110536

PATIENT
  Age: 60 Year
  Sex: Female

DRUGS (11)
  1. FORTEO [Suspect]
     Indication: OSTEOPOROSIS
     Dates: start: 20040701
  2. CYMBALTA [Suspect]
     Dates: start: 20040801
  3. NEXIUM                  (ESOMEPRAZOLE MAGNESTIUM) [Concomitant]
  4. COPAXONE            (GLAIRAMER ACETATE) [Concomitant]
  5. ESTRADIOL [Concomitant]
  6. RITALIN [Concomitant]
  7. PROGESTERONE [Concomitant]
  8. ZANAFLEX [Concomitant]
  9. ULTRAM           (TRAMADOL HYDRCHLORIDE) [Concomitant]
  10. XANAX       (ALPRAZOLAM DUM) [Concomitant]
  11. ZELNORAM        (TEGASEROD MALEATE) [Concomitant]

REACTIONS (1)
  - HIATUS HERNIA [None]
